FAERS Safety Report 8360659-3 (Version None)
Quarter: 2012Q2

REPORT INFORMATION
  Report Type: 
  Country: None (occurrence: None)
  Receive Date: 20120515
  Receipt Date: 20120430
  Transmission Date: 20120825
  Serious: Yes (Other)
  Sender: FDA-Public Use
  Company Number: TN-PURDUE-DEU-2012-0008903

PATIENT
  Age: 38 Year
  Sex: Male

DRUGS (3)
  1. TACROLIMUS [Interacting]
     Indication: PRODUCT USED FOR UNKNOWN INDICATION
     Dosage: 10 MG, DAILY
     Route: 065
     Dates: start: 20080301
  2. THEOPHYLLINE [Suspect]
     Indication: POLYCYTHAEMIA
     Dosage: 300 MG, DAILY
     Route: 065
     Dates: start: 20090601
  3. TACROLIMUS [Interacting]
     Dosage: UNK

REACTIONS (2)
  - RENAL IMPAIRMENT [None]
  - DRUG INTERACTION [None]
